FAERS Safety Report 22219862 (Version 2)
Quarter: 2023Q2

REPORT INFORMATION
  Report Type: Spontaneous
  Country: JP (occurrence: None)
  Receive Date: 20230417
  Receipt Date: 20230529
  Transmission Date: 20230722
  Serious: Yes (Life-Threatening, Hospitalization)
  Sender: FDA-Public Use
  Company Number: 2022A415390

PATIENT
  Age: 28475 Day
  Sex: Female

DRUGS (10)
  1. ONDEXXYA [Suspect]
     Active Substance: ANDEXANET ALFA
     Indication: Haemorrhage
     Dosage: DOSE UNKNOWN
     Route: 042
     Dates: start: 20221218, end: 20221218
  2. HEPARIN [Suspect]
     Active Substance: HEPARIN SODIUM
     Indication: Extracorporeal circulation
     Route: 042
     Dates: start: 20221218, end: 20221218
  3. SEVOFLURANE [Concomitant]
     Active Substance: SEVOFLURANE
     Indication: Anaesthesia procedure
     Dosage: DOSE UNKNOWN
     Route: 042
     Dates: start: 20221218, end: 20221218
  4. DIPRIVAN [Concomitant]
     Active Substance: PROPOFOL
     Indication: Anaesthesia procedure
     Dosage: DOSE UNKNOWN
     Route: 042
     Dates: start: 20221218, end: 20221218
  5. FENTANYL [Concomitant]
     Active Substance: FENTANYL
     Indication: Anaesthesia procedure
     Route: 042
     Dates: start: 20221218, end: 20221218
  6. THIAMYLAL SODIUM [Concomitant]
     Active Substance: THIAMYLAL SODIUM
     Indication: Anaesthesia procedure
     Route: 042
     Dates: start: 20221218, end: 20221218
  7. ROCURONIUM BROMIDE [Concomitant]
     Active Substance: ROCURONIUM BROMIDE
     Indication: Anaesthesia procedure
     Route: 042
     Dates: start: 20221218, end: 20221218
  8. PHENYLEPHRINE HYDROCHLORIDE [Concomitant]
     Active Substance: PHENYLEPHRINE HYDROCHLORIDE
     Indication: Anaesthesia procedure
     Dosage: DOSE UNKNOWN
     Route: 042
     Dates: start: 20221218, end: 20221218
  9. CEFAZOLIN SODIUM [Concomitant]
     Active Substance: CEFAZOLIN SODIUM
     Indication: Anaesthesia procedure
     Route: 042
     Dates: start: 20221218, end: 20221218
  10. EDOXABAN TOSYLATE [Concomitant]
     Active Substance: EDOXABAN TOSYLATE
     Dosage: DOSE UNKNOWN
     Route: 048

REACTIONS (3)
  - Thrombosis in device [Recovered/Resolved]
  - Cerebral infarction [Recovering/Resolving]
  - Heparin resistance [Unknown]

NARRATIVE: CASE EVENT DATE: 20221218
